FAERS Safety Report 19167960 (Version 3)
Quarter: 2022Q1

REPORT INFORMATION
  Report Type: Spontaneous
  Country: US (occurrence: US)
  Receive Date: 20210422
  Receipt Date: 20220207
  Transmission Date: 20220423
  Serious: Yes (Other)
  Sender: FDA-Public Use
  Company Number: US-GLAXOSMITHKLINE-US2021GSK090273

PATIENT
  Sex: Male
  Weight: 81.633 kg

DRUGS (7)
  1. RANITIDINE HYDROCHLORIDE [Suspect]
     Active Substance: RANITIDINE HYDROCHLORIDE
     Indication: Product used for unknown indication
     Dosage: UNK
     Route: 065
  2. ZANTAC [Suspect]
     Active Substance: RANITIDINE HYDROCHLORIDE
     Indication: Dyspepsia
     Dosage: 150 MG, QD
     Route: 065
     Dates: start: 198806, end: 199306
  3. ZANTAC [Suspect]
     Active Substance: RANITIDINE HYDROCHLORIDE
     Indication: Abdominal discomfort
  4. ZANTAC [Suspect]
     Active Substance: RANITIDINE HYDROCHLORIDE
     Indication: Dyspepsia
     Dosage: 150 MG, QD
     Route: 065
     Dates: start: 198806, end: 199306
  5. ZANTAC [Suspect]
     Active Substance: RANITIDINE HYDROCHLORIDE
     Indication: Abdominal discomfort
  6. ZANTAC [Suspect]
     Active Substance: RANITIDINE HYDROCHLORIDE
     Indication: Dyspepsia
     Dosage: 150 MG, QD
     Route: 065
     Dates: start: 200412, end: 200512
  7. RANITIDINE [Suspect]
     Active Substance: RANITIDINE
     Indication: Dyspepsia
     Dosage: 150 MG, QD
     Route: 065
     Dates: start: 200412, end: 200512

REACTIONS (18)
  - Neoplasm malignant [Unknown]
  - Prostate cancer [Unknown]
  - Erectile dysfunction [Unknown]
  - Acute myelomonocytic leukaemia [Unknown]
  - Chronic myelomonocytic leukaemia [Unknown]
  - Myeloproliferative neoplasm [Unknown]
  - Benign prostatic hyperplasia [Unknown]
  - Monocytosis [Unknown]
  - Prostatomegaly [Unknown]
  - Granulocytosis [Unknown]
  - Lymphocytosis [Unknown]
  - Prostate tenderness [Unknown]
  - Polycythaemia [Unknown]
  - Leukocytosis [Unknown]
  - Prostatic pain [Unknown]
  - Prostatitis [Unknown]
  - Monocytosis [Unknown]
  - Prostatic disorder [Unknown]
